FAERS Safety Report 8135367-4 (Version None)
Quarter: 2012Q1

REPORT INFORMATION
  Report Type: 
  Country: None (occurrence: None)
  Receive Date: 20120214
  Receipt Date: 20120201
  Transmission Date: 20120608
  Serious: Yes (Other)
  Sender: FDA-Public Use
  Company Number: US-AMGEN-QUU373832

PATIENT
  Age: 68 Year
  Sex: Female
  Weight: 108 kg

DRUGS (12)
  1. ASPIRIN [Concomitant]
     Dosage: 81 MG, QD
  2. ENBREL [Suspect]
     Indication: RHEUMATOID ARTHRITIS
     Dosage: 50 MG, QWK
     Route: 058
     Dates: start: 20021202
  3. FISH OIL [Concomitant]
     Dosage: 1200 MG, BID
  4. CALCIUM CITRATE [Concomitant]
     Dosage: UNK UNK, BID
  5. FERROUS SULFATE TAB [Concomitant]
     Dosage: UNK UNK,
  6. ESOMEPRAZOLE MAGNESIUM [Concomitant]
     Dosage: UNK UNK,
  7. FUROSEMIDE [Concomitant]
     Dosage: UNK UNK,
  8. FOLIC ACID [Concomitant]
     Dosage: UNK UNK,
  9. VITAMIN A/VITAMIN C/VITAMIN E/ZINC/SELENIUM/COPPER/LUTEIN [Concomitant]
     Dosage: UNK UNK,
  10. ERGOCALCIFEROL [Concomitant]
     Dosage: 50000 IU, QWK
  11. LISINOPRIL [Concomitant]
     Dosage: UNK UNK,
  12. ATENOLOL [Concomitant]

REACTIONS (7)
  - PALPITATIONS [None]
  - HEART RATE DECREASED [None]
  - PANCYTOPENIA [None]
  - UPPER RESPIRATORY TRACT INFECTION [None]
  - LARGE GRANULAR LYMPHOCYTOSIS [None]
  - FLUID OVERLOAD [None]
  - OEDEMA PERIPHERAL [None]
